FAERS Safety Report 10731448 (Version 3)
Quarter: 2017Q1

REPORT INFORMATION
  Report Type: Spontaneous
  Country: US (occurrence: US)
  Receive Date: 20150123
  Receipt Date: 20170320
  Transmission Date: 20170428
  Serious: Yes (Other)
  Sender: FDA-Public Use
  Company Number: US-AUROBINDO-AUR-APU-2015-00329

PATIENT
  Age: 55 Year
  Weight: 55.78 kg

DRUGS (1)
  1. GABAPENTIN CAPSULES 300 MG [Suspect]
     Active Substance: GABAPENTIN
     Indication: SEIZURE
     Dosage: 300 MG, 2 PILLS IN THE MORNING AND 2 PILLS AT NIGHT
     Route: 048
     Dates: end: 20141218

REACTIONS (4)
  - Drug ineffective [Unknown]
  - Product quality issue [Unknown]
  - Myocardial infarction [Unknown]
  - Seizure [Unknown]

NARRATIVE: CASE EVENT DATE: 20141218
